FAERS Safety Report 6446624-1 (Version None)
Quarter: 2009Q4

REPORT INFORMATION
  Report Type: 
  Country: None (occurrence: None)
  Receive Date: 20091119
  Receipt Date: 20091116
  Transmission Date: 20100525
  Serious: Yes (Hospitalization, Congenital Anomaly)
  Sender: FDA-Public Use
  Company Number: A0681168A

PATIENT
  Sex: Male

DRUGS (3)
  1. PAXIL [Suspect]
     Indication: DEPRESSION
     Dosage: 40MG PER DAY
  2. PAXIL CR [Suspect]
     Indication: DEPRESSION
     Dosage: 40MG PER DAY
  3. ASTHMA MEDICATION [Concomitant]

REACTIONS (12)
  - ARNOLD-CHIARI MALFORMATION [None]
  - ATRIAL SEPTAL DEFECT [None]
  - COARCTATION OF THE AORTA [None]
  - COLOBOMA [None]
  - CONGENITAL SCOLIOSIS [None]
  - DRUG EXPOSURE DURING PREGNANCY [None]
  - DYSMORPHISM [None]
  - HEMIVERTEBRA [None]
  - OCULOAURICULOVERTEBRAL DYSPLASIA [None]
  - PATENT DUCTUS ARTERIOSUS [None]
  - PULMONARY HYPOPLASIA [None]
  - VERTICAL TALUS [None]
